FAERS Safety Report 13111947 (Version 2)
Quarter: 2017Q1

REPORT INFORMATION
  Report Type: Spontaneous
  Country: US (occurrence: US)
  Receive Date: 20170113
  Receipt Date: 20170113
  Transmission Date: 20170428
  Serious: No
  Sender: FDA-Public Use
  Company Number: ALCN2017US000631

PATIENT
  Sex: Female

DRUGS (1)
  1. PAZEO [Suspect]
     Active Substance: OLOPATADINE HYDROCHLORIDE
     Indication: PRODUCT USED FOR UNKNOWN INDICATION
     Dosage: 1 GTT, BID
     Route: 047
     Dates: start: 201607, end: 201612

REACTIONS (1)
  - Blepharospasm [Recovered/Resolved]

NARRATIVE: CASE EVENT DATE: 201607
